FAERS Safety Report 5277215-6 (Version None)
Quarter: 2007Q1

REPORT INFORMATION
  Report Type: 
  Country: None (occurrence: None)
  Receive Date: 20061213
  Receipt Date: 20041119
  Transmission Date: 20070707
  Serious: No
  Sender: FDA-Public Use
  Company Number: 2004UW23649

PATIENT
  Age: 34 Year
  Sex: Female
  Weight: 79.379 kg

DRUGS (7)
  1. SEROQUEL [Suspect]
     Indication: ANGER
     Dosage: VARYING DOSES
     Dates: end: 20040101
  2. SEROQUEL [Suspect]
     Indication: BIPOLAR DISORDER
     Dosage: VARYING DOSES
     Dates: end: 20040101
  3. SEROQUEL [Suspect]
     Indication: SLEEP DISORDER
     Dosage: VARYING DOSES
     Dates: end: 20040101
  4. DEPAKOTE [Concomitant]
  5. LITHIUM CARBONATE [Concomitant]
  6. TRAZODONE HCL [Concomitant]
  7. AMBIEN [Concomitant]

REACTIONS (1)
  - TARDIVE DYSKINESIA [None]
